FAERS Safety Report 8546279-6 (Version None)
Quarter: 2012Q3

REPORT INFORMATION
  Report Type: 
  Country: None (occurrence: None)
  Receive Date: 20120727
  Receipt Date: 20120719
  Transmission Date: 20120928
  Serious: Yes (Other)
  Sender: FDA-Public Use
  Company Number: US-ASTRAZENECA-2012SE50985

PATIENT
  Age: 66 Year
  Sex: Male

DRUGS (2)
  1. BRILINTA [Suspect]
     Route: 048
  2. ASPIRIN [Concomitant]

REACTIONS (2)
  - BLOOD URINE PRESENT [None]
  - DYSURIA [None]
